FAERS Safety Report 14057132 (Version 1)
Quarter: 2017Q4

REPORT INFORMATION
  Report Type: Spontaneous
  Country: US (occurrence: US)
  Receive Date: 20171006
  Receipt Date: 20171006
  Transmission Date: 20180321
  Serious: Yes (Other)
  Sender: FDA-Public Use
  Company Number: US-SAOL THERAPEUTICS-0700116289

PATIENT
  Age: 76 Year
  Sex: Male

DRUGS (3)
  1. BACLOFEN. [Suspect]
     Active Substance: BACLOFEN
     Indication: CEREBROVASCULAR ACCIDENT
     Dosage: UNK
     Route: 037
  2. CLONIDINE. [Suspect]
     Active Substance: CLONIDINE
     Dosage: 170.2 ?G, \DAY
     Route: 037
  3. MORPHINE [Suspect]
     Active Substance: MORPHINE
     Dosage: 0.85 MG, \DAY

REACTIONS (9)
  - Asthenia [Unknown]
  - Amnesia [Recovered/Resolved]
  - Suicidal ideation [Unknown]
  - Diarrhoea [Unknown]
  - Delirium [Recovered/Resolved]
  - Drug withdrawal syndrome [Unknown]
  - Aortic valve replacement [Unknown]
  - Mania [Unknown]
  - Constipation [Unknown]

NARRATIVE: CASE EVENT DATE: 2000
